FAERS Safety Report 8908858 (Version 1)
Quarter: 2012Q4

REPORT INFORMATION
  Report Type: 
  Country: US (occurrence: US)
  Receive Date: 20121114
  Receipt Date: 20121114
  Transmission Date: 20130627
  Serious: No
  Sender: FDA-Public Use
  Company Number: US-MYLANLABS-2012S1017742

PATIENT
  Age: 76 Year
  Sex: Male

DRUGS (1)
  1. DOXAZOSIN [Suspect]
     Indication: BENIGN PROSTATIC HYPERPLASIA
     Route: 048
     Dates: end: 201208

REACTIONS (2)
  - Muscular weakness [Recovered/Resolved]
  - Pain in extremity [Not Recovered/Not Resolved]
